FAERS Safety Report 6765163-1 (Version None)
Quarter: 2010Q2

REPORT INFORMATION
  Report Type: 
  Country: None (occurrence: None)
  Receive Date: 20100610
  Receipt Date: 20100610
  Transmission Date: 20101027
  Serious: Yes (Hospitalization)
  Sender: FDA-Public Use
  Company Number: None

PATIENT
  Age: 85 Year
  Sex: Female
  Weight: 69.4003 kg

DRUGS (4)
  1. DILTIAZEM [Suspect]
     Indication: CARDIAC DISORDER
     Dosage: 240 MG 1 A DAY ORAL
     Route: 048
     Dates: start: 20090901, end: 20091001
  2. PREVACID [Concomitant]
  3. ASPIRIN [Concomitant]
  4. SYNTHROID [Suspect]

REACTIONS (8)
  - DIARRHOEA [None]
  - DIZZINESS [None]
  - DYSSTASIA [None]
  - LOSS OF CONSCIOUSNESS [None]
  - NAUSEA [None]
  - RETCHING [None]
  - TREMOR [None]
  - VOMITING [None]
